FAERS Safety Report 6887684-3 (Version None)
Quarter: 2010Q3

REPORT INFORMATION
  Report Type: 
  Country: None (occurrence: None)
  Receive Date: 20100708
  Receipt Date: 20091230
  Transmission Date: 20110219
  Serious: Yes (Other)
  Sender: FDA-Public Use
  Company Number: 2009316363

PATIENT
  Sex: Female
  Weight: 55.8 kg

DRUGS (1)
  1. CHANTIX [Suspect]
     Indication: SMOKING CESSATION THERAPY
     Dosage: ORAL
     Route: 048
     Dates: start: 20070601, end: 20070801

REACTIONS (3)
  - DEPRESSED MOOD [None]
  - MOOD ALTERED [None]
  - SUICIDAL IDEATION [None]
